FAERS Safety Report 11543044 (Version 2)
Quarter: 2015Q4

REPORT INFORMATION
  Report Type: Other
  Country: CA (occurrence: CA)
  Receive Date: 20150923
  Receipt Date: 20151005
  Transmission Date: 20160304
  Serious: Yes (Other)
  Sender: FDA-Public Use
  Company Number: CA-MUNDIPHARMA DS AND PHARMACOVIGILANCE-DEU-2015-0017247

PATIENT
  Age: 38 Year
  Sex: Female

DRUGS (4)
  1. THEOPHYLLINE [Suspect]
     Active Substance: THEOPHYLLINE ANHYDROUS
     Indication: PRODUCT USED FOR UNKNOWN INDICATION
     Route: 048
  2. DIMENHYDRINATE. [Suspect]
     Active Substance: DIMENHYDRINATE
     Indication: GASTROOESOPHAGEAL REFLUX DISEASE
     Dosage: UNK
     Route: 065
  3. DIMENHYDRINATE. [Suspect]
     Active Substance: DIMENHYDRINATE
     Dosage: 50 MG, SEE TEXT
     Route: 065
  4. HALOPERIDOL. [Suspect]
     Active Substance: HALOPERIDOL
     Indication: PRODUCT USED FOR UNKNOWN INDICATION
     Route: 065

REACTIONS (3)
  - Psychotic disorder [Recovered/Resolved]
  - Toxicity to various agents [Recovered/Resolved]
  - Delirium [Recovered/Resolved]
